FAERS Safety Report 9544202 (Version 1)
Quarter: 2013Q3

REPORT INFORMATION
  Report Type: Spontaneous
  Country: US (occurrence: US)
  Receive Date: 20130923
  Receipt Date: 20130923
  Transmission Date: 20140515
  Serious: No
  Sender: FDA-Public Use
  Company Number: US-ASTRAZENECA-2013SE63825

PATIENT
  Age: 80 Year
  Sex: Female

DRUGS (2)
  1. LISINOPRIL [Suspect]
     Route: 048
  2. LOSARTAN [Suspect]
     Route: 065

REACTIONS (6)
  - Muscle spasms [Unknown]
  - Gait disturbance [Unknown]
  - Labile blood pressure [Unknown]
  - Cough [Unknown]
  - Abdominal discomfort [Unknown]
  - Abdominal pain upper [Unknown]
